FAERS Safety Report 15075034 (Version 1)
Quarter: 2018Q2

REPORT INFORMATION
  Report Type: Report from Study
  Country: US (occurrence: US)
  Receive Date: 20180627
  Receipt Date: 20180627
  Transmission Date: 20180711
  Serious: No
  Sender: FDA-Public Use
  Company Number: US-SAOL THERAPEUTICS-2017SAO01675

PATIENT
  Sex: Male

DRUGS (16)
  1. BACLOFEN. [Suspect]
     Active Substance: BACLOFEN
     Dosage: 140.00 ?G, \DAY
     Route: 037
     Dates: start: 20170825
  2. BACLOFEN. [Suspect]
     Active Substance: BACLOFEN
     Dosage: 118.93 ?G, \DAY; MAX DOSE
     Route: 037
     Dates: start: 20170821
  3. BUPIVACAINE. [Suspect]
     Active Substance: BUPIVACAINE
     Dosage: 9.009 MG, \DAY
     Route: 037
     Dates: start: 20170821
  4. DILAUDID [Suspect]
     Active Substance: HYDROMORPHONE HYDROCHLORIDE
     Dosage: 0.4000 MG, \DAY
     Route: 037
     Dates: start: 20170825
  5. DILAUDID [Suspect]
     Active Substance: HYDROMORPHONE HYDROCHLORIDE
     Dosage: 0.468 MG, \DAY; MAX DOSE
     Route: 037
     Dates: start: 20170825
  6. BACLOFEN. [Suspect]
     Active Substance: BACLOFEN
     Indication: PAIN
     Dosage: 105.10 ?G, \DAY
     Route: 037
     Dates: start: 20170821
  7. BACLOFEN. [Suspect]
     Active Substance: BACLOFEN
     Dosage: 164.05 ?G, \DAY; MAX DOSE
     Route: 037
     Dates: start: 20170825
  8. BUPIVACAINE. [Suspect]
     Active Substance: BUPIVACAINE
     Dosage: 8.768 MG, \DAY
     Route: 037
     Dates: start: 20170619, end: 20170821
  9. DILAUDID [Suspect]
     Active Substance: HYDROMORPHONE HYDROCHLORIDE
     Dosage: 300.29 ?G, \DAY
     Route: 037
     Dates: start: 20170619, end: 20170821
  10. DILAUDID [Suspect]
     Active Substance: HYDROMORPHONE HYDROCHLORIDE
     Dosage: 356.60 ?G, \DAY; MAX DOSE
     Route: 037
     Dates: start: 20170619, end: 20170821
  11. BUPIVACAINE. [Suspect]
     Active Substance: BUPIVACAINE
     Dosage: 12.000 MG, \DAY
     Route: 037
     Dates: start: 20170825
  12. BUPIVACAINE. [Suspect]
     Active Substance: BUPIVACAINE
     Dosage: 10.412 MG, \DAY; MAX DOSE
     Route: 037
     Dates: start: 20170619, end: 20170821
  13. DILAUDID [Suspect]
     Active Substance: HYDROMORPHONE HYDROCHLORIDE
     Dosage: 0.300 MG, \DAY
     Route: 037
     Dates: start: 20170821
  14. DILAUDID [Suspect]
     Active Substance: HYDROMORPHONE HYDROCHLORIDE
     Dosage: 0.339 MG, \DAY; MAX DOSE
     Route: 037
     Dates: start: 20170821
  15. BUPIVACAINE. [Suspect]
     Active Substance: BUPIVACAINE
     Dosage: 10.194 MG, \DAY; MAX DOSE
     Route: 037
     Dates: start: 20170821
  16. BUPIVACAINE. [Suspect]
     Active Substance: BUPIVACAINE
     Dosage: 14.061 MG, \DAY; MAX DOSE
     Route: 037
     Dates: start: 20170825

REACTIONS (6)
  - Mental status changes [Unknown]
  - Drug ineffective for unapproved indication [Unknown]
  - Fatigue [Unknown]
  - Somnolence [Unknown]
  - Hypersomnia [Unknown]
  - Hypoaesthesia [Recovered/Resolved]

NARRATIVE: CASE EVENT DATE: 20170623
